FAERS Safety Report 5986665-1 (Version None)
Quarter: 2008Q4

REPORT INFORMATION
  Report Type: 
  Country: None (occurrence: None)
  Receive Date: 20081209
  Receipt Date: 20081127
  Transmission Date: 20090506
  Serious: Yes (Hospitalization)
  Sender: FDA-Public Use
  Company Number: KR-ROCHE-599611

PATIENT
  Sex: Male
  Weight: 65.8 kg

DRUGS (12)
  1. CAPECITABINE [Suspect]
     Dosage: FREQUENCY: D1- 14Q3W TEMPORARLY INTERRUPTED
     Route: 048
     Dates: start: 20081121, end: 20081126
  2. BLINDED BEVACIZUMAB [Suspect]
     Dosage: DOSAGE FORM : INFUSION
     Route: 042
     Dates: start: 20081121
  3. CISPLATIN [Suspect]
     Dosage: DOSAGE FORM INFUSION
     Route: 042
     Dates: start: 20081121
  4. DEXAMETHASONE [Concomitant]
     Dosage: ROUTE: INTRAVENOUS
     Dates: start: 20081121, end: 20081121
  5. DEXAMETHASONE [Concomitant]
     Dosage: ROUTE: ORAL
     Dates: start: 20081122, end: 20081123
  6. GRANISETRON [Concomitant]
     Route: 042
     Dates: start: 20081121, end: 20081121
  7. GRANISETRON [Concomitant]
     Route: 042
     Dates: start: 20081122, end: 20081125
  8. OXYCODONE HCL [Concomitant]
     Route: 048
     Dates: start: 20081120
  9. METOCLOPRAMIDE [Concomitant]
     Route: 048
     Dates: start: 20081121
  10. MILK OF MAGNESIA [Concomitant]
     Route: 048
     Dates: start: 20081121
  11. LACTULOSE [Concomitant]
     Route: 048
     Dates: start: 20081125
  12. ALBUMIN (HUMAN) [Concomitant]
     Route: 042
     Dates: start: 20081116

REACTIONS (2)
  - BLOOD CREATININE INCREASED [None]
  - BLOOD UREA INCREASED [None]
